FAERS Safety Report 10029453 (Version 1)
Quarter: 2014Q1

REPORT INFORMATION
  Report Type: Spontaneous
  Country: IT (occurrence: IT)
  Receive Date: 20140322
  Receipt Date: 20140322
  Transmission Date: 20141002
  Serious: Yes (Other)
  Sender: FDA-Public Use
  Company Number: PHHY2014IT031524

PATIENT
  Age: 53 Year
  Sex: Female

DRUGS (6)
  1. LETROZOLE [Suspect]
     Indication: BREAST CANCER METASTATIC
  2. TRASTUZUMAB [Suspect]
     Indication: BREAST CANCER METASTATIC
  3. LUTEINIZING HORMONE-RELEASING HORMONE [Suspect]
     Indication: BREAST CANCER METASTATIC
  4. FULVESTRANT [Suspect]
     Indication: BREAST CANCER METASTATIC
  5. LAPATINIB [Suspect]
     Dosage: UNK
     Dates: start: 200901
  6. LAPATINIB [Suspect]
     Dosage: UNK
     Dates: start: 200906

REACTIONS (4)
  - Breast cancer metastatic [Unknown]
  - Malignant neoplasm progression [Unknown]
  - Palmar-plantar erythrodysaesthesia syndrome [Unknown]
  - Asthenia [Unknown]
